FAERS Safety Report 9174160 (Version 1)
Quarter: 2013Q1

REPORT INFORMATION
  Report Type: Spontaneous
  Country: US (occurrence: None)
  Receive Date: 20130318
  Receipt Date: 20130318
  Transmission Date: 20140127
  Serious: Yes (Other)
  Sender: FDA-Public Use
  Company Number: None

PATIENT
  Sex: Female

DRUGS (1)
  1. FORTEO 20 MEQ LILLY [Suspect]
     Indication: RHEUMATOID ARTHRITIS
     Dosage: 20 MEQ DAILY SQ
     Route: 058
     Dates: start: 2012, end: 20130214

REACTIONS (2)
  - Urticaria [None]
  - Pruritus [None]
